FAERS Safety Report 8078681-3 (Version None)
Quarter: 2012Q1

REPORT INFORMATION
  Report Type: 
  Country: None (occurrence: None)
  Receive Date: 20120124
  Receipt Date: 20120111
  Transmission Date: 20120608
  Serious: Yes (Hospitalization)
  Sender: FDA-Public Use
  Company Number: 216460

PATIENT
  Age: 34 Year
  Sex: Male
  Weight: 90 kg

DRUGS (12)
  1. PREVISCAN (FLUINDIONE) (20 MG) [Suspect]
     Indication: DEEP VEIN THROMBOSIS
     Dosage: 20 MG, ORAL
     Route: 048
     Dates: start: 20111114, end: 20111124
  2. PREVISCAN (FLUINDIONE) (20 MG) [Suspect]
     Indication: PULMONARY EMBOLISM
     Dosage: 20 MG, ORAL
     Route: 048
     Dates: start: 20111114, end: 20111124
  3. ACUPAN [Concomitant]
  4. TRAMADOL HYDROHLORIDE [Concomitant]
  5. PRIMPERAN TAB [Concomitant]
  6. NEXIUM [Concomitant]
  7. INNOHEP [Suspect]
     Indication: PULMONARY EMBOLISM
     Dosage: 0.7 ML, SUBCUTANEOUS
     Route: 058
     Dates: start: 20111118, end: 20111123
  8. INNOHEP [Suspect]
     Indication: DEEP VEIN THROMBOSIS
     Dosage: 0.7 ML, SUBCUTANEOUS
     Route: 058
     Dates: start: 20111118, end: 20111123
  9. KETOPROFEN [Concomitant]
  10. LOVENOX [Concomitant]
  11. ACETAMINOPHEN [Concomitant]
  12. ACETAMINOPHEN [Concomitant]

REACTIONS (3)
  - HAEMATURIA [None]
  - ACTIVATED PARTIAL THROMBOPLASTIN TIME PROLONGED [None]
  - BACK PAIN [None]
